FAERS Safety Report 10458790 (Version 2)
Quarter: 2014Q3

REPORT INFORMATION
  Report Type: Report from Study
  Country: IN (occurrence: IN)
  Receive Date: 20140917
  Receipt Date: 20140917
  Transmission Date: 20150326
  Serious: Yes (Death)
  Sender: FDA-Public Use
  Company Number: PHHY2014IN085662

PATIENT
  Age: 29 Year
  Sex: Male

DRUGS (4)
  1. TEMONAT [Concomitant]
     Indication: CHEMOTHERAPY
     Dosage: 200 MG, QD
     Route: 048
     Dates: start: 20140607, end: 20140625
  2. AFINITOR [Suspect]
     Active Substance: EVEROLIMUS
     Indication: PANCREATIC NEUROENDOCRINE TUMOUR
     Dosage: 10 MG, QD
     Route: 048
     Dates: start: 20140308
  3. AFINITOR [Suspect]
     Active Substance: EVEROLIMUS
     Dosage: 5 MG, QD
     Route: 048
  4. CAPECITABINE [Concomitant]
     Active Substance: CAPECITABINE
     Indication: CHEMOTHERAPY
     Dosage: 1000 MG, BID
     Route: 048
     Dates: start: 20140607, end: 20140625

REACTIONS (4)
  - Metastases to liver [Unknown]
  - Death [Fatal]
  - Blood bilirubin increased [Recovering/Resolving]
  - Blood alkaline phosphatase increased [Recovering/Resolving]

NARRATIVE: CASE EVENT DATE: 20140618
